FAERS Safety Report 7774617-0 (Version None)
Quarter: 2011Q3

REPORT INFORMATION
  Report Type: 
  Country: None (occurrence: None)
  Receive Date: 20110923
  Receipt Date: 20110914
  Transmission Date: 20111222
  Serious: Yes (Hospitalization, Other)
  Sender: FDA-Public Use
  Company Number: FI-NOVOPROD-333920

PATIENT

DRUGS (7)
  1. RAMIPRIL [Concomitant]
     Dosage: UNK
  2. ATORVASTATIN [Concomitant]
  3. LANTUS [Concomitant]
     Dosage: 40 IU, UNK
  4. VICTOZA [Suspect]
     Indication: TYPE 2 DIABETES MELLITUS
     Dosage: 1X1.2 MG
     Route: 058
     Dates: start: 20110101, end: 20110806
  5. INSULIN [Concomitant]
     Dosage: UNK
  6. LANTUS [Concomitant]
     Dosage: 20 IU, UNK
  7. INSULIN [Concomitant]
     Dosage: UNK

REACTIONS (6)
  - GENERAL PHYSICAL HEALTH DETERIORATION [None]
  - DIARRHOEA [None]
  - URINARY TRACT INFECTION [None]
  - NAUSEA [None]
  - DEHYDRATION [None]
  - VOMITING [None]
